FAERS Safety Report 8911001 (Version 1)
Quarter: 2012Q4

REPORT INFORMATION
  Report Type: 
  Country: US (occurrence: US)
  Receive Date: 20121115
  Receipt Date: 20121115
  Transmission Date: 20130627
  Serious: Yes (Hospitalization)
  Sender: FDA-Public Use
  Company Number: US-MYLANLABS-2012S1022963

PATIENT
  Age: 65 Year
  Sex: Female

DRUGS (2)
  1. ENOXAPARIN SODIUM [Suspect]
     Indication: ANTICOAGULANT THERAPY
     Route: 065
  2. WARFARIN [Suspect]
     Indication: ANTICOAGULANT THERAPY
     Route: 065

REACTIONS (2)
  - Abdominal wall haematoma [Recovering/Resolving]
  - Gastrointestinal perforation [Recovering/Resolving]
